FAERS Safety Report 5332702-7 (Version None)
Quarter: 2007Q2

REPORT INFORMATION
  Report Type: 
  Country: None (occurrence: None)
  Receive Date: 20070521
  Receipt Date: 20070504
  Transmission Date: 20071010
  Serious: Yes (Other)
  Sender: FDA-Public Use
  Company Number: 2007EU000990

PATIENT
  Age: 4 Year
  Sex: Male

DRUGS (5)
  1. PROGRAF [Suspect]
     Indication: ALOPECIA UNIVERSALIS
     Dosage: BID, TOPICAL
     Route: 061
  2. CYCLOSPORINE [Suspect]
     Indication: ALOPECIA UNIVERSALIS
     Dosage: SEE IMAGE
     Route: 048
  3. CYCLOSPORINE [Suspect]
     Indication: ALOPECIA UNIVERSALIS
     Dosage: SEE IMAGE
     Route: 048
  4. CYCLOSPORINE [Suspect]
     Indication: ALOPECIA UNIVERSALIS
     Dosage: SEE IMAGE
     Route: 048
  5. PREDNISOLONE [Suspect]
     Indication: ALOPECIA UNIVERSALIS
     Dosage: 5 MG/KG, OTHER, ORAL
     Route: 048

REACTIONS (5)
  - ABNORMAL BEHAVIOUR [None]
  - ANTINUCLEAR ANTIBODY INCREASED [None]
  - CUSHINGOID [None]
  - DRUG INEFFECTIVE [None]
  - TINEA PEDIS [None]
